FAERS Safety Report 13513480 (Version 1)
Quarter: 2017Q2

REPORT INFORMATION
  Report Type: Spontaneous
  Country: US (occurrence: US)
  Receive Date: 20170504
  Receipt Date: 20170504
  Transmission Date: 20170830
  Serious: Yes (Other)
  Sender: FDA-Public Use
  Company Number: None

PATIENT
  Age: 32 Year
  Sex: Female
  Weight: 70.65 kg

DRUGS (1)
  1. FLONASE [Suspect]
     Active Substance: FLUTICASONE PROPIONATE
     Indication: SEASONAL ALLERGY
     Dosage: AT BEDTIME  RESPIRATORY (INHALATION)
     Route: 055
     Dates: start: 20170416

REACTIONS (5)
  - Swelling face [None]
  - Pruritus [None]
  - Urticaria [None]
  - Pain [None]
  - Hypersensitivity [None]

NARRATIVE: CASE EVENT DATE: 20170417
